FAERS Safety Report 5699601-2 (Version None)
Quarter: 2008Q2

REPORT INFORMATION
  Report Type: 
  Country: None (occurrence: None)
  Receive Date: 20080408
  Receipt Date: 20080408
  Transmission Date: 20081010
  Serious: Yes (Other)
  Sender: FDA-Public Use
  Company Number: None

PATIENT
  Sex: Female

DRUGS (2)
  1. VANCOMYCIN [Suspect]
  2. ZOSYN [Suspect]

REACTIONS (4)
  - ERYTHEMA [None]
  - RASH GENERALISED [None]
  - RED MAN SYNDROME [None]
  - URTICARIA [None]
